FAERS Safety Report 4357274-5 (Version None)
Quarter: 2004Q2

REPORT INFORMATION
  Report Type: 
  Country: None (occurrence: None)
  Receive Date: 20040513
  Receipt Date: 20040504
  Transmission Date: 20050107
  Serious: Yes (Hospitalization)
  Sender: FDA-Public Use
  Company Number: PHFR2004GB02011

PATIENT
  Age: 75 Year
  Sex: Female

DRUGS (22)
  1. CARBAMAZEPINE [Suspect]
     Indication: TRIGEMINAL NEURALGIA
     Dosage: 300 MG, QD
     Route: 048
     Dates: start: 20040308, end: 20040329
  2. AMITRIPTYLINE HCL [Concomitant]
     Dosage: 10 MG, BID
     Route: 065
  3. THYROXINE [Concomitant]
     Dosage: 150-175 UG ALTERNATE DAYS
     Route: 065
  4. ALBUTEROL SULFATE [Concomitant]
     Dosage: 2 X 100UG PRN
     Route: 065
  5. SERETIDE ^ALLEN + HANBURYS LTD^ [Concomitant]
     Dosage: 2X250UG BID
     Route: 065
  6. ASPIRIN [Concomitant]
     Dosage: 75 MG, QD
     Route: 065
  7. IRON SULFATETHIAMIN COMPOUND TAB [Concomitant]
     Dosage: 200 MG, TID
     Route: 065
  8. BETNOVATE [Concomitant]
     Route: 061
  9. FUROSEMIDE [Concomitant]
     Dosage: 40 MG, BID
     Route: 065
  10. METFORMIN HCL [Concomitant]
     Dosage: 500 MG, QID
     Route: 065
  11. LOSARTAN POTASSIUM [Concomitant]
     Dosage: 100 MG, QD
     Route: 065
  12. BENDROFLUAZIDE [Concomitant]
     Dosage: 2.5 MG, QD
     Route: 065
  13. SIMVASTATIN [Concomitant]
     Dosage: 40 MG, QD
     Route: 065
  14. PERINDOPRIL [Concomitant]
     Dosage: 2 TABS , QD
     Route: 065
  15. CEPHALEXIN [Concomitant]
     Route: 065
  16. AMOXICILLIN AND CLAVULANATE POTASSIUM [Concomitant]
     Route: 065
  17. CO-CODAMOL [Concomitant]
     Route: 065
  18. CO-DYDRAMOL [Concomitant]
     Route: 065
  19. LACTULOSE [Concomitant]
     Route: 065
  20. ROSIGLITAZONE MALEATE [Concomitant]
     Dosage: 4MG/MANE
     Route: 065
  21. TEMGESIC ^RECKITT^ [Concomitant]
     Dosage: .2 MG, QD
     Route: 065
  22. TRANSTEC [Concomitant]
     Dosage: 35UG EVERY 3RD DAY
     Route: 065

REACTIONS (7)
  - FEELING HOT [None]
  - LIP HAEMORRHAGE [None]
  - MOUTH ULCERATION [None]
  - PAIN IN EXTREMITY [None]
  - PHARYNGOLARYNGEAL PAIN [None]
  - RASH [None]
  - WOUND SECRETION [None]
